FAERS Safety Report 19421897 (Version 1)
Quarter: 2021Q2

REPORT INFORMATION
  Report Type: Spontaneous
  Country: US (occurrence: US)
  Receive Date: 20210615
  Receipt Date: 20210615
  Transmission Date: 20210717
  Serious: No
  Sender: FDA-Public Use
  Company Number: None

PATIENT
  Age: 73 Year
  Sex: Male
  Weight: 74 kg

DRUGS (1)
  1. CEFDINIR (CEFDINIR 300MG CAP) [Suspect]
     Active Substance: CEFDINIR
     Route: 048
     Dates: start: 20210315, end: 20210315

REACTIONS (1)
  - Palpitations [None]

NARRATIVE: CASE EVENT DATE: 20210315
